FAERS Safety Report 7368519-1 (Version None)
Quarter: 2011Q1

REPORT INFORMATION
  Report Type: 
  Country: None (occurrence: None)
  Receive Date: 20110323
  Receipt Date: 20110309
  Transmission Date: 20110831
  Serious: Yes (Hospitalization)
  Sender: FDA-Public Use
  Company Number: US-JNJFOC-20110305065

PATIENT
  Age: 51 Year
  Sex: Female

DRUGS (1)
  1. EXTRA STRENGTH ROLAIDS SOFTCHEWS CHERRY [Suspect]
     Indication: DYSPEPSIA
     Dosage: TWO EVERY 4 HOURS
     Route: 048

REACTIONS (3)
  - COLITIS ULCERATIVE [None]
  - PRODUCT QUALITY ISSUE [None]
  - GASTRIC DISORDER [None]
